FAERS Safety Report 4967634-7 (Version None)
Quarter: 2006Q2

REPORT INFORMATION
  Report Type: 
  Country: None (occurrence: None)
  Receive Date: 20060403
  Receipt Date: 20060327
  Transmission Date: 20061013
  Serious: Yes (Life-Threatening)
  Sender: FDA-Public Use
  Company Number: 2006AL000317

PATIENT
  Age: 40 Year
  Sex: Female
  Weight: 93.8946 kg

DRUGS (8)
  1. KADIAN [Suspect]
     Indication: PAIN
     Dosage: 100 MG;QD;PO
     Route: 048
     Dates: start: 20051228, end: 20051229
  2. NEXIUM [Concomitant]
  3. NEURONTIN [Concomitant]
  4. PROVENTIL [Concomitant]
  5. SYMBALTA [Concomitant]
  6. ADVAIR DISKUS 100/50 [Concomitant]
  7. ROBAXIN [Concomitant]
  8. AVINZA [Concomitant]

REACTIONS (2)
  - DRUG HYPERSENSITIVITY [None]
  - OVERDOSE [None]
